FAERS Safety Report 6286510-3 (Version None)
Quarter: 2009Q3

REPORT INFORMATION
  Report Type: 
  Country: None (occurrence: None)
  Receive Date: 20090728
  Receipt Date: 20090720
  Transmission Date: 20100115
  Serious: Yes (Death)
  Sender: FDA-Public Use
  Company Number: FR-BAXTER-2009BH011868

PATIENT
  Age: 39 Year
  Sex: Female

DRUGS (5)
  1. ENDOXAN BAXTER [Suspect]
     Indication: COLON CANCER
     Route: 042
     Dates: start: 19880101
  2. DOXORUBICIN HCL [Suspect]
     Indication: COLON CANCER
     Route: 042
     Dates: start: 19880101
  3. ONCOVIN [Suspect]
     Indication: COLON CANCER
     Route: 042
     Dates: start: 19880101
  4. SOLUPRED [Suspect]
     Indication: COLON CANCER
     Route: 048
     Dates: start: 19880101
  5. RADIOTHERAPY [Suspect]
     Indication: COLON CANCER
     Route: 065
     Dates: start: 19880101

REACTIONS (4)
  - CACHEXIA [None]
  - HYPOCALCAEMIA [None]
  - MALABSORPTION [None]
  - MALNUTRITION [None]
